FAERS Safety Report 17936516 (Version 1)
Quarter: 2020Q2

REPORT INFORMATION
  Report Type: Spontaneous
  Country: US (occurrence: US)
  Receive Date: 20200624
  Receipt Date: 20200624
  Transmission Date: 20200714
  Serious: No
  Sender: FDA-Public Use
  Company Number: US-JNJFOC-20200623630

PATIENT
  Age: 40 Year
  Sex: Female
  Weight: 63.56 kg

DRUGS (3)
  1. REMICADE [Suspect]
     Active Substance: INFLIXIMAB
     Indication: COLITIS ULCERATIVE
     Route: 042
     Dates: end: 20200427
  2. REMICADE [Suspect]
     Active Substance: INFLIXIMAB
     Route: 042
     Dates: start: 20200227, end: 20200227
  3. ALBUTEROL                          /00139501/ [Concomitant]
     Active Substance: ALBUTEROL
     Indication: PRODUCT USED FOR UNKNOWN INDICATION

REACTIONS (10)
  - Alopecia [Recovering/Resolving]
  - Headache [Recovering/Resolving]
  - Muscular weakness [Recovering/Resolving]
  - Chest pain [Recovering/Resolving]
  - Product use issue [Unknown]
  - Rash vesicular [Recovering/Resolving]
  - Epistaxis [Recovering/Resolving]
  - Off label use [Unknown]
  - Hepatic enzyme increased [Recovering/Resolving]
  - Diarrhoea [Recovering/Resolving]

NARRATIVE: CASE EVENT DATE: 2020
